APPROVED DRUG PRODUCT: OSELTAMIVIR PHOSPHATE
Active Ingredient: OSELTAMIVIR PHOSPHATE
Strength: EQ 30MG BASE
Dosage Form/Route: CAPSULE;ORAL
Application: A212544 | Product #001 | TE Code: AB
Applicant: MSN LABORATORIES PRIVATE LTD
Approved: May 20, 2020 | RLD: No | RS: No | Type: RX